FAERS Safety Report 4912991-0 (Version None)
Quarter: 2006Q1

REPORT INFORMATION
  Report Type: 
  Country: None (occurrence: None)
  Receive Date: 20060210
  Receipt Date: 20060201
  Transmission Date: 20060701
  Serious: Yes (Other)
  Sender: FDA-Public Use
  Company Number: TPA2006A00133

PATIENT
  Age: 67 Year
  Sex: Female
  Weight: 69.8539 kg

DRUGS (12)
  1. ACTOS [Suspect]
     Indication: DIABETES MELLITUS NON-INSULIN-DEPENDENT
     Dosage: PER ORAL
     Route: 048
     Dates: end: 20060105
  2. BYETTA [Suspect]
     Indication: DIABETES MELLITUS
     Dosage: SEE IMAGE
     Route: 058
     Dates: start: 20051101, end: 20051201
  3. BYETTA [Suspect]
     Indication: DIABETES MELLITUS
     Dosage: SEE IMAGE
     Route: 058
     Dates: start: 20051201, end: 20060105
  4. GLUCOPHAGE [Suspect]
     Dates: end: 20060105
  5. GLIPIZIDE [Suspect]
     Dates: end: 20060105
  6. STARLIX [Suspect]
     Dates: end: 20060105
  7. LIPITOR [Suspect]
     Dates: end: 20060106
  8. LANTUS [Concomitant]
  9. NEXIUM (ESOMEPRAZOLE MAGNESIUM) (TABLETS) [Concomitant]
  10. PRINIVIL [Concomitant]
  11. SYNTHROID [Concomitant]
  12. CLONAZEPAM [Concomitant]

REACTIONS (15)
  - ABDOMINAL PAIN UPPER [None]
  - ALANINE AMINOTRANSFERASE INCREASED [None]
  - ANAEMIA [None]
  - ANOREXIA [None]
  - ASPARTATE AMINOTRANSFERASE INCREASED [None]
  - BLOOD GLUCOSE DECREASED [None]
  - BLOOD GLUCOSE INCREASED [None]
  - BLOOD POTASSIUM INCREASED [None]
  - BOWEL SOUNDS ABNORMAL [None]
  - FALSE POSITIVE LABORATORY RESULT [None]
  - IRON DEFICIENCY ANAEMIA [None]
  - NAUSEA [None]
  - PANCREATITIS [None]
  - PHARYNGOLARYNGEAL PAIN [None]
  - VOMITING [None]
